FAERS Safety Report 13518702 (Version 1)
Quarter: 2017Q2

REPORT INFORMATION
  Report Type: Spontaneous
  Country: CA (occurrence: CA)
  Receive Date: 20170505
  Receipt Date: 20170505
  Transmission Date: 20170830
  Serious: Yes (Hospitalization)
  Sender: FDA-Public Use
  Company Number: CA-TEVA-765227ACC

PATIENT
  Age: 55 Year
  Sex: Male

DRUGS (4)
  1. WARFARIN [Suspect]
     Active Substance: WARFARIN
     Indication: CEREBROVASCULAR ACCIDENT PROPHYLAXIS
     Dosage: 6 MILLIGRAM DAILY;
     Route: 048
  2. CODEINE [Concomitant]
     Active Substance: CODEINE
  3. PERINDOPRIL [Concomitant]
     Active Substance: PERINDOPRIL
  4. METOPROLOL. [Concomitant]
     Active Substance: METOPROLOL

REACTIONS (1)
  - Abdominal wall haematoma [Unknown]
